FAERS Safety Report 5763805-0 (Version None)
Quarter: 2008Q2

REPORT INFORMATION
  Report Type: 
  Country: None (occurrence: None)
  Receive Date: 20080605
  Receipt Date: 20080523
  Transmission Date: 20081010
  Serious: Yes (Hospitalization)
  Sender: FDA-Public Use
  Company Number: SPV1-2008-01015

PATIENT
  Age: 57 Year
  Sex: Female

DRUGS (22)
  1. CARBATROL [Suspect]
     Indication: ACCIDENTAL EXPOSURE
     Dosage: 700 MG, ONE DOSE
     Dates: start: 20080421, end: 20080421
  2. CLONAZEPAM [Suspect]
     Indication: ACCIDENTAL EXPOSURE
     Dosage: 4.5 MG, ONE DOSE
     Dates: start: 20080421, end: 20080421
  3. TEGRETOL [Suspect]
     Indication: ACCIDENTAL EXPOSURE
     Dosage: 350 MG, ONE DOSE
     Dates: start: 20080421, end: 20080421
  4. LAMICTAL [Suspect]
     Indication: ACCIDENTAL EXPOSURE
     Dosage: 350 MG, ONE DOSE
     Dates: start: 20080421, end: 20080421
  5. ZOLOFT [Suspect]
     Indication: ACCIDENTAL EXPOSURE
     Dosage: 100 MG, ONE DOSE
     Dates: start: 20080421, end: 20080421
  6. COLACE(DOCUSATE SODIUM) [Suspect]
     Indication: ACCIDENTAL EXPOSURE
     Dosage: 100 MG, ONE DOSE
     Dates: start: 20080421, end: 20080421
  7. MELATONIN(MELATONIN) [Suspect]
     Indication: ACCIDENTAL EXPOSURE
     Dosage: 175 MG, ONE DOSE
     Dates: start: 20080421, end: 20080421
  8. ZANTAC [Suspect]
     Indication: DRUG USE FOR UNKNOWN INDICATION
     Dosage: 150 MG, ONE DOSE
     Dates: start: 20080421, end: 20080421
  9. BLINDED THERAPY [Concomitant]
  10. AMITRIPTYLENE (AMITRIPTYLINE HYDROCHLORIDE) [Concomitant]
  11. IMITREX  /01044801/ (SUMATRIPTAN) [Concomitant]
  12. TETRACYCLINE [Concomitant]
  13. PROPRANOLOL [Concomitant]
  14. TYLENOL W/ CODEINE NO. 3 [Concomitant]
  15. GLUCOSAMINE + CHONDROITIN (CHONDROITIN SULFATE, GLUCOSAMINE) [Concomitant]
  16. VITAMINS NOS (VITAMINS NOS) [Concomitant]
  17. VITAMIN E /00110501/ (TOCOPHEROL) [Concomitant]
  18. PEPCID /00706001/ (FAMOTIDINE) [Concomitant]
  19. ADVIL [Concomitant]
  20. MELATONIN (MELATONIN) [Concomitant]
  21. LIPITOR [Concomitant]
  22. FLUOXETINE [Concomitant]

REACTIONS (5)
  - ACCIDENTAL EXPOSURE [None]
  - CONFUSIONAL STATE [None]
  - INCONTINENCE [None]
  - LETHARGY [None]
  - UNRESPONSIVE TO STIMULI [None]
